FAERS Safety Report 4699391-6 (Version None)
Quarter: 2005Q2

REPORT INFORMATION
  Report Type: 
  Country: None (occurrence: None)
  Receive Date: 20050624
  Receipt Date: 20050121
  Transmission Date: 20051028
  Serious: Yes (Hospitalization)
  Sender: FDA-Public Use
  Company Number: US-MERCK-0501USA03517

PATIENT
  Age: 50 Year
  Sex: Female

DRUGS (3)
  1. VIOXX [Suspect]
     Route: 048
  2. CLARITIN [Concomitant]
     Route: 065
  3. PREMPRO [Concomitant]
     Route: 065

REACTIONS (22)
  - ABDOMINAL PAIN [None]
  - ACUTE CORONARY SYNDROME [None]
  - ANGINA UNSTABLE [None]
  - CHEST PAIN [None]
  - CORONARY ARTERY DISEASE [None]
  - CORONARY ARTERY THROMBOSIS [None]
  - CORONARY OSTIAL STENOSIS [None]
  - COUGH [None]
  - DIABETES MELLITUS NON-INSULIN-DEPENDENT [None]
  - DIARRHOEA [None]
  - DIZZINESS [None]
  - DYSPHONIA [None]
  - FATIGUE [None]
  - HYPERTENSION [None]
  - MICROALBUMINURIA [None]
  - MYOCARDIAL INFARCTION [None]
  - RECTAL HAEMORRHAGE [None]
  - STASIS DERMATITIS [None]
  - UMBILICAL HERNIA [None]
  - URINARY TRACT INFECTION [None]
  - VENOUS INSUFFICIENCY [None]
  - WEIGHT DECREASED [None]
